FAERS Safety Report 7602840-4 (Version None)
Quarter: 2011Q3

REPORT INFORMATION
  Report Type: 
  Country: None (occurrence: None)
  Receive Date: 20110712
  Receipt Date: 20110705
  Transmission Date: 20111222
  Serious: Yes (Other)
  Sender: FDA-Public Use
  Company Number: US-JNJFOC-20110604947

PATIENT
  Sex: Female

DRUGS (7)
  1. LEVAQUIN [Suspect]
     Indication: BRONCHITIS
     Route: 048
  2. LEVAQUIN [Suspect]
     Route: 048
  3. LEVAQUIN [Suspect]
     Indication: URINARY TRACT INFECTION
     Route: 048
  4. LEVAQUIN [Suspect]
     Route: 048
  5. PREDNISONE [Suspect]
     Route: 048
  6. PREDNISONE [Suspect]
     Indication: PRODUCT USED FOR UNKNOWN INDICATION
     Route: 048
  7. PREDNISONE [Suspect]
     Route: 048

REACTIONS (2)
  - TENDON DISORDER [None]
  - ROTATOR CUFF SYNDROME [None]
